FAERS Safety Report 9341314 (Version 1)
Quarter: 2013Q2

REPORT INFORMATION
  Report Type: Spontaneous
  Country: US (occurrence: None)
  Receive Date: 20130610
  Receipt Date: 20130610
  Transmission Date: 20140414
  Serious: No
  Sender: FDA-Public Use
  Company Number: None

PATIENT
  Age: 38 Year
  Sex: Female
  Weight: 73.03 kg

DRUGS (1)
  1. ZYRTEC [Suspect]
     Indication: INFLAMMATION
     Dosage: 1 TAB / 24 HOURS
     Route: 048
     Dates: start: 20130606, end: 20130607

REACTIONS (5)
  - Lymphadenopathy [None]
  - Nausea [None]
  - Neck pain [None]
  - Sensory disturbance [None]
  - Pharyngeal disorder [None]
